FAERS Safety Report 10952615 (Version 1)
Quarter: 2015Q1

REPORT INFORMATION
  Report Type: Spontaneous
  Country: US (occurrence: None)
  Receive Date: 20150324
  Receipt Date: 20150324
  Transmission Date: 20150721
  Serious: No
  Sender: FDA-Public Use
  Company Number: None

PATIENT
  Age: 49 Year
  Sex: Female
  Weight: 63.5 kg

DRUGS (5)
  1. EFFEXOR XR [Suspect]
     Active Substance: VENLAFAXINE HYDROCHLORIDE
     Indication: ANXIETY
     Dosage: TAKEN BY MOUTH
     Dates: start: 20150312, end: 20150322
  2. CRESTOR [Concomitant]
     Active Substance: ROSUVASTATIN CALCIUM
  3. ASPIRIN. [Concomitant]
     Active Substance: ASPIRIN
  4. COQ10 [Concomitant]
     Active Substance: UBIDECARENONE
  5. DRENAMIN [Concomitant]

REACTIONS (4)
  - Paraesthesia oral [None]
  - Muscle tightness [None]
  - Paraesthesia [None]
  - Middle insomnia [None]
